FAERS Safety Report 4870387-4 (Version None)
Quarter: 2006Q1

REPORT INFORMATION
  Report Type: 
  Country: None (occurrence: None)
  Receive Date: 20060103
  Receipt Date: 20051222
  Transmission Date: 20060701
  Serious: Yes (Other)
  Sender: FDA-Public Use
  Company Number: US-JNJFOC-20051205683

PATIENT
  Sex: Female

DRUGS (22)
  1. INFLIXIMAB [Suspect]
     Indication: RHEUMATOID ARTHRITIS
     Route: 042
     Dates: start: 20011004, end: 20020301
  2. ARAVA [Concomitant]
  3. CALCIUM GLUCONATE [Concomitant]
  4. CLINDAMYCIN [Concomitant]
  5. ENBREL [Concomitant]
  6. LEVOTHYROXINE SODIUM [Concomitant]
  7. PREDNISONE [Concomitant]
  8. ULTRACET [Concomitant]
  9. ACTONEL [Concomitant]
  10. GLUCOSAMINE WITH CHONDROITIN [Concomitant]
  11. GLUCOSAMINE WITH CHONDROITIN [Concomitant]
  12. GLUCOSAMINE WITH CHONDROITIN [Concomitant]
  13. GLUCOSAMINE WITH CHONDROITIN [Concomitant]
  14. FENTANYL [Concomitant]
     Dosage: ^75^
  15. MULTIVITAMIN [Concomitant]
  16. MULTIVITAMIN [Concomitant]
  17. MULTIVITAMIN [Concomitant]
  18. MULTIVITAMIN [Concomitant]
  19. MULTIVITAMIN [Concomitant]
  20. MULTIVITAMIN [Concomitant]
  21. MULTIVITAMIN [Concomitant]
  22. MULTIVITAMIN [Concomitant]

REACTIONS (1)
  - BASAL CELL CARCINOMA [None]
